FAERS Safety Report 18456383 (Version 4)
Quarter: 2025Q2

REPORT INFORMATION
  Report Type: Report from Study
  Country: US (occurrence: US)
  Receive Date: 20201103
  Receipt Date: 20250507
  Transmission Date: 20250717
  Serious: Yes (Hospitalization, Other)
  Sender: TAKEDA
  Company Number: US-TAKEDA-2020TUS044267

PATIENT
  Sex: Male
  Weight: 86 kg

DRUGS (34)
  1. .ALPHA.1-PROTEINASE INHIBITOR HUMAN [Suspect]
     Active Substance: .ALPHA.1-PROTEINASE INHIBITOR HUMAN
     Indication: Alpha-1 antitrypsin deficiency
     Dosage: 4340 MILLIGRAM, 1/WEEK
     Dates: start: 20200128
  2. .ALPHA.1-PROTEINASE INHIBITOR HUMAN [Suspect]
     Active Substance: .ALPHA.1-PROTEINASE INHIBITOR HUMAN
     Indication: Congenital hypogammaglobulinaemia
     Dosage: UNK UNK, 1/WEEK
  3. .ALPHA.1-PROTEINASE INHIBITOR HUMAN [Suspect]
     Active Substance: .ALPHA.1-PROTEINASE INHIBITOR HUMAN
     Dosage: 60 MILLIGRAM/KILOGRAM, 1/WEEK
  4. SIROLIMUS [Suspect]
     Active Substance: SIROLIMUS
     Indication: Product used for unknown indication
  5. XANAX [Concomitant]
     Active Substance: ALPRAZOLAM
  6. DOXYCYCLINE HYCLATE [Concomitant]
     Active Substance: DOXYCYCLINE HYCLATE
  7. OXYGEN [Concomitant]
     Active Substance: OXYGEN
  8. APPLE CIDER VINEGAR [Concomitant]
     Active Substance: APPLE CIDER VINEGAR
  9. DIPHENHYDRAMINE [Concomitant]
     Active Substance: DIPHENHYDRAMINE
  10. SODIUM CHLORIDE [Concomitant]
     Active Substance: SODIUM CHLORIDE
  11. EPINEPHRINE [Concomitant]
     Active Substance: EPINEPHRINE
  12. LOVASTATIN [Concomitant]
     Active Substance: LOVASTATIN
  13. LOSARTAN AND HYDROCHLOROTHIAZIDE [Concomitant]
     Active Substance: HYDROCHLOROTHIAZIDE\LOSARTAN POTASSIUM
  14. ADVAIR HFA [Concomitant]
     Active Substance: FLUTICASONE PROPIONATE\SALMETEROL XINAFOATE
  15. FISH OIL [Concomitant]
     Active Substance: FISH OIL
  16. ALBUTEROL [Concomitant]
     Active Substance: ALBUTEROL
  17. SPIRIVA RESPIMAT [Concomitant]
     Active Substance: TIOTROPIUM BROMIDE
  18. VITAMIN D3 [Concomitant]
     Active Substance: CHOLECALCIFEROL
  19. STIOLTO RESPIMAT [Concomitant]
     Active Substance: OLODATEROL HYDROCHLORIDE\TIOTROPIUM BROMIDE MONOHYDRATE
  20. Covid-19 vaccine [Concomitant]
  21. ALBUTEROL SULFATE [Concomitant]
     Active Substance: ALBUTEROL SULFATE
  22. DIPHENHYDRAMINE HYDROCHLORIDE [Concomitant]
     Active Substance: DIPHENHYDRAMINE HYDROCHLORIDE
  23. METOPROLOL TARTRATE [Concomitant]
     Active Substance: METOPROLOL TARTRATE
  24. ATORVASTATIN CALCIUM [Concomitant]
     Active Substance: ATORVASTATIN CALCIUM
  25. LOPERAMIDE [Concomitant]
     Active Substance: LOPERAMIDE
  26. SIMETHICONE (DIMETHICONE) [Concomitant]
     Active Substance: DIMETHICONE
  27. XARELTO [Concomitant]
     Active Substance: RIVAROXABAN
  28. PROTONIX [Concomitant]
     Active Substance: PANTOPRAZOLE SODIUM
  29. CALCIUM CARBONATE [Concomitant]
     Active Substance: CALCIUM CARBONATE
  30. PREDNISONE [Concomitant]
     Active Substance: PREDNISONE
  31. SULFAMETHOXAZOLE\TRIMETHOPRIM [Concomitant]
     Active Substance: SULFAMETHOXAZOLE\TRIMETHOPRIM
  32. MAGNESIUM CHLORIDE [Concomitant]
     Active Substance: MAGNESIUM CHLORIDE
  33. TACROLIMUS [Concomitant]
     Active Substance: TACROLIMUS
  34. ALBUTEROL [Concomitant]
     Active Substance: ALBUTEROL

REACTIONS (4)
  - Acute respiratory failure [Unknown]
  - Toxicity to various agents [Recovering/Resolving]
  - Vein disorder [Unknown]
  - Poor venous access [Unknown]
